FAERS Safety Report 17805348 (Version 1)
Quarter: 2020Q2

REPORT INFORMATION
  Report Type: Report from Study
  Country: LB (occurrence: LB)
  Receive Date: 20200519
  Receipt Date: 20200519
  Transmission Date: 20200714
  Serious: Yes (Other)
  Sender: FDA-Public Use
  Company Number: LB-TAKEDA-2020TUS022888

PATIENT
  Age: 73 Year
  Sex: Male

DRUGS (1)
  1. PONATINIB [Suspect]
     Active Substance: PONATINIB
     Indication: GASTROINTESTINAL STROMAL TUMOUR
     Dosage: 30 MILLIGRAM, QD
     Route: 048
     Dates: start: 202001

REACTIONS (2)
  - Gastrointestinal stromal tumour [Unknown]
  - Off label use [Unknown]
